FAERS Safety Report 19573474 (Version 3)
Quarter: 2021Q4

REPORT INFORMATION
  Report Type: Report from Study
  Country: HU (occurrence: HU)
  Receive Date: 20210717
  Receipt Date: 20211023
  Transmission Date: 20220303
  Serious: Yes (Death, Hospitalization, Other)
  Sender: FDA-Public Use
  Company Number: HU-TAKEDA-2021TUS043668

PATIENT
  Age: 65 Year
  Sex: Female
  Weight: 76 kg

DRUGS (8)
  1. PARATHYROID HORMONE [Suspect]
     Active Substance: PARATHYROID HORMONE
     Indication: Hypoparathyroidism
     Dosage: 75 MICROGRAM, QD
     Route: 058
     Dates: start: 20210309, end: 20210707
  2. PARATHYROID HORMONE [Suspect]
     Active Substance: PARATHYROID HORMONE
     Indication: Hypoparathyroidism
     Dosage: 75 MICROGRAM, QD
     Route: 058
     Dates: start: 20210309, end: 20210707
  3. PARATHYROID HORMONE [Suspect]
     Active Substance: PARATHYROID HORMONE
     Indication: Hypoparathyroidism
     Dosage: 75 MICROGRAM, QD
     Route: 058
     Dates: start: 20210309, end: 20210707
  4. Calcitrol [Concomitant]
     Indication: Hypoparathyroidism
     Dosage: 0.5 MICROGRAM
     Route: 048
     Dates: start: 20210528
  5. FAMOTIDINE [Concomitant]
     Active Substance: FAMOTIDINE
     Indication: Intraductal proliferative breast lesion
     Dosage: 2.5 MILLIGRAM
     Route: 048
     Dates: start: 20191028
  6. LEVOTHYROXINE [Concomitant]
     Active Substance: LEVOTHYROXINE
     Indication: Hypothyroidism
     Dosage: 75 MICROGRAM
     Route: 048
     Dates: start: 20150219
  7. PERINDOPRIL [Concomitant]
     Active Substance: PERINDOPRIL
     Indication: Hypertension
     Dosage: 2.5 MILLIGRAM
     Route: 048
     Dates: start: 20161001
  8. CALCIUM CITRATE [Concomitant]
     Active Substance: CALCIUM CITRATE
     Indication: Hypocalcaemia
     Dosage: 200 MILLIGRAM
     Route: 048
     Dates: start: 20200626

REACTIONS (5)
  - Colorectal cancer [Fatal]
  - Metastases to liver [Fatal]
  - Metastases to bone [Fatal]
  - Second primary malignancy [Fatal]
  - Metastases to lung [Fatal]

NARRATIVE: CASE EVENT DATE: 20210101
